FAERS Safety Report 9816095 (Version 1)
Quarter: 2014Q1

REPORT INFORMATION
  Report Type: Spontaneous
  Country: US (occurrence: US)
  Receive Date: 20140114
  Receipt Date: 20140114
  Transmission Date: 20141002
  Serious: Yes (Death)
  Sender: FDA-Public Use
  Company Number: US-PFIZER INC-2014006814

PATIENT
  Age: 47 Year
  Sex: Male

DRUGS (6)
  1. ALPRAZOLAM [Suspect]
     Dosage: UNK
  2. HYDROXYZINE PAMOATE [Suspect]
     Dosage: UNK
  3. DEXTROMETHORPHAN HBR [Suspect]
     Dosage: UNK
  4. HEROIN [Suspect]
     Dosage: UNK
  5. COCAINE [Suspect]
     Dosage: UNK
  6. QUININE [Suspect]
     Dosage: UNK

REACTIONS (3)
  - Completed suicide [Fatal]
  - Cardiac arrest [Fatal]
  - Respiratory arrest [Fatal]
